FAERS Safety Report 18542011 (Version 7)
Quarter: 2023Q4

REPORT INFORMATION
  Report Type: Report from Study
  Country: DE (occurrence: DE)
  Receive Date: 20201124
  Receipt Date: 20231030
  Transmission Date: 20240110
  Serious: Yes (Death, Hospitalization, Other)
  Sender: FDA-Public Use
  Company Number: NVSC2020DE249266

PATIENT
  Age: 48 Year
  Sex: Male
  Weight: 95 kg

DRUGS (26)
  1. ILARIS [Suspect]
     Active Substance: CANAKINUMAB
     Indication: Familial mediterranean fever
     Dosage: 150 MG, Q4W
     Route: 058
     Dates: start: 201711, end: 202007
  2. PROGRAF [Concomitant]
     Active Substance: TACROLIMUS
     Indication: Renal transplant
     Dosage: 3.5 MG, BID
     Route: 048
     Dates: start: 200811
  3. ANAKINRA [Concomitant]
     Active Substance: ANAKINRA
     Indication: Product used for unknown indication
     Dosage: 100 MG, 1 X TGL (EVERY OTHER DAY)
     Route: 058
     Dates: start: 20201110
  4. MYFORTIC [Concomitant]
     Active Substance: MYCOPHENOLATE SODIUM
     Indication: Renal transplant
     Dosage: 720 MG, BID
     Route: 048
     Dates: start: 200811
  5. COLCHICUM [Concomitant]
     Active Substance: COLCHICINE
     Indication: Immunosuppression
     Dosage: UNK
     Route: 065
  6. METHYLPREDNISOLONE [Concomitant]
     Active Substance: METHYLPREDNISOLONE
     Indication: Renal transplant
     Dosage: 4 MG, QD
     Route: 048
     Dates: start: 200811
  7. GANCICLOVIR [Concomitant]
     Active Substance: GANCICLOVIR
     Indication: Product used for unknown indication
     Dosage: 100 MG, QD (1-0-0)
     Route: 042
     Dates: start: 20201110
  8. HEPARIN [Concomitant]
     Active Substance: HEPARIN SODIUM
     Indication: Product used for unknown indication
     Dosage: UNK (LR 0.5 ML/H) (15000 IE/50 ML)
     Route: 042
     Dates: start: 20201110
  9. FUROSEMIDE [Concomitant]
     Active Substance: FUROSEMIDE
     Indication: Product used for unknown indication
     Dosage: UNK (BREAK)
     Route: 042
     Dates: start: 20201110
  10. INSULIN NOS [Concomitant]
     Active Substance: INSULIN NOS
     Indication: Product used for unknown indication
     Dosage: UNK (40 IE/40 ML), ACCORDING BLOOD GLUCOSE
     Route: 042
     Dates: start: 20201110
  11. POTASSIUM CHLORIDE [Concomitant]
     Active Substance: POTASSIUM CHLORIDE
     Indication: Product used for unknown indication
     Dosage: 150 ML (ACCORDING TO POTASSIUM LEVEL)
     Route: 042
     Dates: start: 20201110
  12. PREDNISOLONE [Concomitant]
     Active Substance: PREDNISOLONE
     Indication: Product used for unknown indication
     Dosage: 20 MG, UNKNOWN
     Route: 042
     Dates: start: 20201110
  13. CERNEVIT [Concomitant]
     Active Substance: VITAMINS
     Indication: Product used for unknown indication
     Dosage: 1 DF, QD (1 AMP)
     Route: 042
     Dates: start: 20201110
  14. KONAKION [Concomitant]
     Active Substance: PHYTONADIONE
     Indication: Product used for unknown indication
     Dosage: 1 DF, QW
     Route: 042
     Dates: start: 20201110
  15. NEOSTIGMINE [Concomitant]
     Active Substance: NEOSTIGMINE
     Indication: Product used for unknown indication
     Dosage: 1.5 MG, UNKNOWN
     Route: 042
     Dates: start: 20201110
  16. NUTRISON ENERGY MULTI FIBER [Concomitant]
     Indication: Product used for unknown indication
     Dosage: UNK (LR 5G ML/HR)
     Route: 048
     Dates: start: 20201110
  17. TACROLIMUS [Concomitant]
     Active Substance: TACROLIMUS
     Indication: Product used for unknown indication
     Dosage: 1 MG (3-0-3)
     Route: 048
     Dates: start: 20201110
  18. NEXIUM [Concomitant]
     Active Substance: ESOMEPRAZOLE MAGNESIUM
     Indication: Product used for unknown indication
     Dosage: 40 MG, TID (1-1-1)
     Route: 048
     Dates: start: 20201110
  19. ASPIRIN [Concomitant]
     Active Substance: ASPIRIN
     Indication: Product used for unknown indication
     Dosage: 100 MG, QD (1-0-0)
     Route: 048
     Dates: start: 20201110
  20. CLONAZEPAM [Concomitant]
     Active Substance: CLONAZEPAM
     Indication: Product used for unknown indication
     Dosage: 0.5 MG (2-0-2)
     Route: 048
     Dates: start: 20201110
  21. LEVETIRACETAM [Concomitant]
     Active Substance: LEVETIRACETAM
     Indication: Product used for unknown indication
     Dosage: 750 MG, BID (1-0-1)
     Route: 048
     Dates: start: 20201110
  22. AMIKACIN [Concomitant]
     Active Substance: AMIKACIN
     Indication: Immunosuppression
     Dosage: UNK
     Route: 065
  23. VALCYTE [Concomitant]
     Active Substance: VALGANCICLOVIR HYDROCHLORIDE
     Indication: Product used for unknown indication
     Dosage: UNK (BREAK)
     Route: 048
     Dates: start: 20201110
  24. CANAKINUMAB [Concomitant]
     Active Substance: CANAKINUMAB
     Indication: Immunosuppression
     Dosage: UNK
     Route: 065
  25. CHOLECALCIFEROL [Concomitant]
     Active Substance: CHOLECALCIFEROL
     Indication: Product used for unknown indication
     Dosage: UNK UNK, BID (1-0-1)
     Route: 048
     Dates: start: 20201110
  26. COTRIMOXAZOLE [Concomitant]
     Active Substance: SULFAMETHOXAZOLE\TRIMETHOPRIM
     Indication: Product used for unknown indication
     Dosage: 960 MG (EVERY OTHER DAY)
     Route: 048
     Dates: start: 20201110

REACTIONS (13)
  - COVID-19 [Fatal]
  - Oropharyngeal pain [Fatal]
  - Dysphonia [Fatal]
  - Productive cough [Fatal]
  - Headache [Fatal]
  - Pyrexia [Fatal]
  - Diarrhoea [Fatal]
  - Myalgia [Fatal]
  - Gastric ulcer [Fatal]
  - Pain in extremity [Fatal]
  - Respiratory failure [Unknown]
  - Acute respiratory distress syndrome [Unknown]
  - Acute kidney injury [Unknown]

NARRATIVE: CASE EVENT DATE: 20200501
